FAERS Safety Report 20304751 (Version 2)
Quarter: 2022Q1

REPORT INFORMATION
  Report Type: Spontaneous
  Country: DE (occurrence: DE)
  Receive Date: 20220106
  Receipt Date: 20220121
  Transmission Date: 20220424
  Serious: Yes (Hospitalization, Other)
  Sender: FDA-Public Use
  Company Number: DE-Desitin-2021-03182

PATIENT
  Age: 13 Year
  Sex: Female
  Weight: 59 kg

DRUGS (4)
  1. LAMOTRIGINE [Interacting]
     Active Substance: LAMOTRIGINE
     Indication: Epilepsy
     Dosage: 225 MILLIGRAM, QD (100-0-125)
     Route: 048
  2. ETHOSUXIMIDE [Interacting]
     Active Substance: ETHOSUXIMIDE
     Indication: Epilepsy
     Dosage: 1250 MILLIGRAM, QD (500-0-750)
  3. MIDAZOLAM HYDROCHLORIDE [Concomitant]
     Active Substance: MIDAZOLAM HYDROCHLORIDE
     Indication: Seizure
     Dosage: UNK
     Dates: start: 20211208, end: 20211208
  4. DIMENHYDRINATE [Concomitant]
     Active Substance: DIMENHYDRINATE
     Indication: Vomiting
     Dosage: UNK
     Dates: start: 20211208, end: 20211208

REACTIONS (4)
  - Anticonvulsant drug level below therapeutic [Not Recovered/Not Resolved]
  - Drug ineffective [Not Recovered/Not Resolved]
  - Seizure [Not Recovered/Not Resolved]
  - Drug interaction [Unknown]

NARRATIVE: CASE EVENT DATE: 20211101
